FAERS Safety Report 21595716 (Version 1)
Quarter: 2022Q4

REPORT INFORMATION
  Report Type: Spontaneous
  Country: AU (occurrence: AU)
  Receive Date: 20221115
  Receipt Date: 20221115
  Transmission Date: 20230113
  Serious: Yes (Other)
  Sender: FDA-Public Use
  Company Number: None

PATIENT
  Age: 56 Year
  Sex: Female

DRUGS (18)
  1. ATORVASTATIN [Suspect]
     Active Substance: ATORVASTATIN
     Indication: Product used for unknown indication
  2. ATROPINE SULFATE [Suspect]
     Active Substance: ATROPINE SULFATE
     Indication: Product used for unknown indication
  3. CLOZAPINE [Suspect]
     Active Substance: CLOZAPINE
     Indication: Product used for unknown indication
  4. OLANZAPINE [Suspect]
     Active Substance: OLANZAPINE
     Indication: Product used for unknown indication
  5. PREGABALIN [Suspect]
     Active Substance: PREGABALIN
     Indication: Product used for unknown indication
  6. QUETIAPINE [Suspect]
     Active Substance: QUETIAPINE
     Indication: Product used for unknown indication
  7. ASPIRIN [Suspect]
     Active Substance: ASPIRIN
     Indication: Product used for unknown indication
  8. CLOZAPINE [Suspect]
     Active Substance: CLOZAPINE
     Indication: Product used for unknown indication
  9. DOCUSATE SODIUM\SENNOSIDES A AND B [Suspect]
     Active Substance: DOCUSATE SODIUM\SENNOSIDES A AND B
     Indication: Product used for unknown indication
  10. CRESTOR [Suspect]
     Active Substance: ROSUVASTATIN CALCIUM
     Indication: Product used for unknown indication
  11. DICLOFENAC [Suspect]
     Active Substance: DICLOFENAC
     Indication: Product used for unknown indication
  12. GLICLAZIDE [Suspect]
     Active Substance: GLICLAZIDE
     Indication: Product used for unknown indication
  13. LITHIUM [Suspect]
     Active Substance: LITHIUM
     Indication: Product used for unknown indication
  14. METFORMIN [Suspect]
     Active Substance: METFORMIN HYDROCHLORIDE
     Indication: Product used for unknown indication
  15. ACETAMINOPHEN [Suspect]
     Active Substance: ACETAMINOPHEN
     Indication: Product used for unknown indication
  16. PERINDOPRIL [Suspect]
     Active Substance: PERINDOPRIL
     Indication: Product used for unknown indication
  17. VALPROATE SODIUM [Suspect]
     Active Substance: VALPROATE SODIUM
     Indication: Product used for unknown indication
  18. TEMAZEPAM [Suspect]
     Active Substance: TEMAZEPAM
     Indication: Product used for unknown indication

REACTIONS (62)
  - Bipolar I disorder [Unknown]
  - Cardiomyopathy [Unknown]
  - Consciousness fluctuating [Unknown]
  - Cerebral infarction [Unknown]
  - Delirium [Unknown]
  - Myocarditis [Unknown]
  - Rebound psychosis [Unknown]
  - Schizophrenia [Unknown]
  - Schizoaffective disorder [Unknown]
  - Drug ineffective [Unknown]
  - Affect lability [Unknown]
  - Anger [Unknown]
  - Anosognosia [Unknown]
  - Autonomic nervous system imbalance [Unknown]
  - Balance disorder [Unknown]
  - Behaviour disorder [Unknown]
  - Catatonia [Unknown]
  - Contusion [Unknown]
  - Delusion [Unknown]
  - Delusion of grandeur [Unknown]
  - Emotional distress [Unknown]
  - Fall [Unknown]
  - Agitated depression [Unknown]
  - Agitation [Unknown]
  - Anxiety [Unknown]
  - Dehydration [Unknown]
  - Euphoric mood [Unknown]
  - Flight of ideas [Unknown]
  - Frustration tolerance decreased [Unknown]
  - Hirsutism [Unknown]
  - Humerus fracture [Unknown]
  - Hypercalcaemia [Unknown]
  - Hypertension [Unknown]
  - Hyperthermia [Unknown]
  - Hypophagia [Unknown]
  - Irritability [Unknown]
  - Judgement impaired [Unknown]
  - Mania [Unknown]
  - Memory impairment [Unknown]
  - Muscle injury [Unknown]
  - Movement disorder [Unknown]
  - Muscle rigidity [Unknown]
  - Mental disorder [Unknown]
  - Obsessive-compulsive disorder [Unknown]
  - Osteoporosis [Unknown]
  - Paranoia [Unknown]
  - Pressure of speech [Unknown]
  - Psychotic disorder [Unknown]
  - Seasonal affective disorder [Unknown]
  - Sleep disorder [Unknown]
  - Somatic symptom disorder [Unknown]
  - Somnolence [Unknown]
  - Toxicity to various agents [Unknown]
  - Troponin increased [Unknown]
  - Vitamin D deficiency [Unknown]
  - Abdominal pain [Unknown]
  - Amnesia [Unknown]
  - Arthralgia [Unknown]
  - Blood creatine phosphokinase increased [Unknown]
  - Constipation [Unknown]
  - Fatigue [Unknown]
  - Pain in extremity [Unknown]
